FAERS Safety Report 9671674 (Version 1)
Quarter: 2013Q4

REPORT INFORMATION
  Report Type: Spontaneous
  Country: US (occurrence: None)
  Receive Date: 20131105
  Receipt Date: 20131105
  Transmission Date: 20140711
  Serious: Yes (Hospitalization)
  Sender: FDA-Public Use
  Company Number: None

PATIENT
  Age: 70 Year
  Sex: Female
  Weight: 46.2 kg

DRUGS (1)
  1. AMPHOTERICIN B [Suspect]
     Indication: PNEUMONIA FUNGAL
     Route: 042
     Dates: end: 20110917

REACTIONS (8)
  - Infusion related reaction [None]
  - Renal pain [None]
  - Arthralgia [None]
  - Back pain [None]
  - Tremor [None]
  - Panic reaction [None]
  - Chills [None]
  - Flushing [None]
